FAERS Safety Report 23770025 (Version 1)
Quarter: 2024Q2

REPORT INFORMATION
  Report Type: Spontaneous
  Country: US (occurrence: None)
  Receive Date: 20240421
  Receipt Date: 20240421
  Transmission Date: 20240716
  Serious: Yes (Hospitalization)
  Sender: FDA-Public Use
  Company Number: None

PATIENT
  Age: 95 Year
  Sex: Male

DRUGS (3)
  1. VALSARTAN [Suspect]
     Active Substance: VALSARTAN
     Indication: Hypertension
     Dosage: FREQUENCY : DAILY;?
     Route: 048
     Dates: start: 20220802
  2. VALSARTAN [Suspect]
     Active Substance: VALSARTAN
     Indication: Cardiac failure congestive
  3. HYDROCHLOROTHIAZIDE [Suspect]
     Active Substance: HYDROCHLOROTHIAZIDE

REACTIONS (9)
  - Syncope [None]
  - Hypokalaemia [None]
  - Hypotension [None]
  - Blood pressure inadequately controlled [None]
  - Tremor [None]
  - Incontinence [None]
  - Confusional state [None]
  - Dysarthria [None]
  - Prerenal failure [None]

NARRATIVE: CASE EVENT DATE: 20230530
